FAERS Safety Report 9891555 (Version 2)
Quarter: 2014Q1

REPORT INFORMATION
  Report Type: Spontaneous
  Country: JP (occurrence: JP)
  Receive Date: 20140212
  Receipt Date: 20140302
  Transmission Date: 20141002
  Serious: Yes (Death)
  Sender: FDA-Public Use
  Company Number: JP-OTSUKA-JP-2014-10574

PATIENT
  Age: 58 Year
  Sex: Female

DRUGS (6)
  1. PLETAAL [Suspect]
     Indication: CRYOGLOBULINAEMIA
     Dosage: UNK
     Route: 048
  2. PLETAAL [Suspect]
     Indication: CARDIAC FAILURE CONGESTIVE
  3. ASPIRIN [Concomitant]
     Indication: CRYOGLOBULINAEMIA
     Dosage: UNK
     Route: 065
  4. ASPIRIN [Concomitant]
     Indication: CARDIAC FAILURE CONGESTIVE
  5. PREDNISOLONE [Concomitant]
     Indication: CRYOGLOBULINAEMIA
     Dosage: UNK
     Route: 065
  6. PREDNISOLONE [Concomitant]
     Indication: CARDIAC FAILURE CONGESTIVE

REACTIONS (2)
  - Haemorrhage [Fatal]
  - Sudden death [Fatal]
